FAERS Safety Report 10534952 (Version 1)
Quarter: 2014Q4

REPORT INFORMATION
  Report Type: Spontaneous
  Country: US (occurrence: US)
  Receive Date: 20141022
  Receipt Date: 20141022
  Transmission Date: 20150529
  Serious: No
  Sender: FDA-Public Use
  Company Number: US-ASTRAZENECA-2014SE04632

PATIENT
  Age: 75 Year
  Sex: Male
  Weight: 79.4 kg

DRUGS (6)
  1. METOPROLOL [Suspect]
     Active Substance: METOPROLOL
     Indication: BLOOD PRESSURE INCREASED
     Route: 048
  2. PROSCAR [Concomitant]
     Active Substance: FINASTERIDE
     Indication: PROSTATIC DISORDER
     Route: 048
  3. PLAVIX [Concomitant]
     Active Substance: CLOPIDOGREL BISULFATE
     Indication: VASCULAR GRAFT
     Route: 048
  4. CRESTOR [Suspect]
     Active Substance: ROSUVASTATIN CALCIUM
     Indication: BLOOD CHOLESTEROL ABNORMAL
     Route: 048
     Dates: start: 2003
  5. LASIX [Concomitant]
     Active Substance: FUROSEMIDE
     Indication: BLOOD POTASSIUM INCREASED
     Route: 048
  6. PEPCID [Concomitant]
     Active Substance: FAMOTIDINE
     Indication: DYSPEPSIA
     Route: 048

REACTIONS (2)
  - Blood potassium increased [Unknown]
  - Myalgia [Not Recovered/Not Resolved]

NARRATIVE: CASE EVENT DATE: 201401
